FAERS Safety Report 11616654 (Version 2)
Quarter: 2015Q4

REPORT INFORMATION
  Report Type: Report from Study
  Country: DE (occurrence: DE)
  Receive Date: 20151009
  Receipt Date: 20151020
  Transmission Date: 20160304
  Serious: Yes (Hospitalization, Other)
  Sender: FDA-Public Use
  Company Number: PHHY2013DE141074

PATIENT
  Sex: Female
  Weight: 94 kg

DRUGS (24)
  1. SPIRIVA [Concomitant]
     Active Substance: TIOTROPIUM BROMIDE MONOHYDRATE
     Dosage: 36 UG, QD
     Route: 055
     Dates: start: 20150107
  2. BEROTEC N [Concomitant]
     Indication: CHRONIC OBSTRUCTIVE PULMONARY DISEASE
     Dosage: 100 UG (30 ML PER DAY)
     Route: 065
     Dates: end: 20141221
  3. BELOC-ZOK COMP [Concomitant]
     Active Substance: HYDROCHLOROTHIAZIDE\METOPROLOL SUCCINATE
     Indication: HYPERTENSION
     Dosage: 95 MG, QD
     Route: 065
  4. BEROTEC N [Concomitant]
     Dosage: 100 UG (30 ML PER DAY)
     Route: 065
     Dates: start: 20150107
  5. TOREM [Concomitant]
     Active Substance: TORSEMIDE
     Indication: DEHYDRATION
     Dosage: 5 MG, QD
     Route: 065
  6. OXYGEN. [Concomitant]
     Active Substance: OXYGEN
     Indication: CHRONIC OBSTRUCTIVE PULMONARY DISEASE
     Dosage: VARIABLE
     Route: 065
     Dates: start: 20141221
  7. SYMBICORT [Concomitant]
     Active Substance: BUDESONIDE\FORMOTEROL FUMARATE DIHYDRATE
     Dosage: 1 DF, QD (320/9 UNITS NOT REPORTED)
     Route: 055
     Dates: start: 20150107
  8. MAGNESIUM [Concomitant]
     Active Substance: MAGNESIUM
     Indication: PRODUCT USED FOR UNKNOWN INDICATION
     Route: 065
  9. PREDNISOLON JENAPHARM [Concomitant]
     Indication: CHRONIC OBSTRUCTIVE PULMONARY DISEASE
     Dosage: VARIABLE
     Route: 065
     Dates: end: 20141221
  10. FORADIL [Suspect]
     Active Substance: FORMOTEROL FUMARATE
     Indication: CHRONIC OBSTRUCTIVE PULMONARY DISEASE
     Dosage: 1 DF, BID
     Route: 055
     Dates: start: 20130425, end: 20141221
  11. SPIRIVA [Concomitant]
     Active Substance: TIOTROPIUM BROMIDE MONOHYDRATE
     Indication: CHRONIC OBSTRUCTIVE PULMONARY DISEASE
     Dosage: 1 DF (18 UG), QD
     Route: 055
     Dates: start: 20130425
  12. SPIRIVA [Concomitant]
     Active Substance: TIOTROPIUM BROMIDE MONOHYDRATE
     Dosage: 36 UG, QD
     Route: 055
     Dates: end: 20141221
  13. PARACETAMOL AL [Concomitant]
     Indication: PAIN
     Dosage: 500 MG, PRN
     Route: 065
     Dates: end: 20141221
  14. FUROBETA [Concomitant]
     Indication: PRODUCT USED FOR UNKNOWN INDICATION
     Route: 065
  15. PANTOPRAZOL AL [Concomitant]
     Indication: PROPHYLAXIS
     Dosage: 20 MG, QD
     Route: 065
  16. SALBUTAMOL AL [Concomitant]
     Indication: CHRONIC OBSTRUCTIVE PULMONARY DISEASE
     Dosage: UNK, PRN
     Route: 055
     Dates: end: 20141221
  17. SALBUTAMOL AL [Concomitant]
     Dosage: UNK, PRN
     Route: 055
     Dates: start: 20150107
  18. AMOXIBETA [Concomitant]
     Indication: CHRONIC OBSTRUCTIVE PULMONARY DISEASE
     Dosage: 3000 MG, QD
     Route: 048
     Dates: start: 20141221
  19. FORADIL [Suspect]
     Active Substance: FORMOTEROL FUMARATE
     Dosage: UNK
     Route: 065
  20. ONGLYZA [Concomitant]
     Active Substance: SAXAGLIPTIN HYDROCHLORIDE
     Indication: DIABETES MELLITUS
     Dosage: 5 MG, QD
     Route: 065
     Dates: start: 20141221
  21. SYMBICORT [Concomitant]
     Active Substance: BUDESONIDE\FORMOTEROL FUMARATE DIHYDRATE
     Indication: CHRONIC OBSTRUCTIVE PULMONARY DISEASE
     Dosage: 1 DF, QD (320/9 UNITS NOT REPORTED)
     Route: 055
     Dates: end: 20141221
  22. ACC [Concomitant]
     Active Substance: ACETYLCYSTEINE
     Indication: CHRONIC OBSTRUCTIVE PULMONARY DISEASE
     Dosage: 600 MG, QD
     Route: 065
     Dates: start: 20141221
  23. NO TREATMENT RECEIVED [Suspect]
     Active Substance: UNSPECIFIED INGREDIENT
     Indication: CHRONIC OBSTRUCTIVE PULMONARY DISEASE
     Dosage: 44 UG, QD
     Route: 055
     Dates: start: 20130124, end: 20130425
  24. OXYCODONE [Concomitant]
     Active Substance: OXYCODONE
     Indication: PAIN
     Dosage: 20 MG, QD
     Route: 065
     Dates: start: 20141221

REACTIONS (13)
  - Pneumonia [Recovered/Resolved]
  - Wheezing [Recovering/Resolving]
  - Pharyngitis [Unknown]
  - Chronic obstructive pulmonary disease [Recovered/Resolved]
  - Forced expiratory volume decreased [Recovering/Resolving]
  - Chest pain [Recovering/Resolving]
  - Dyspnoea at rest [Recovering/Resolving]
  - Chest discomfort [Recovering/Resolving]
  - Chronic obstructive pulmonary disease [Recovering/Resolving]
  - Cough [Recovering/Resolving]
  - Grunting [Recovering/Resolving]
  - Prolonged expiration [Recovering/Resolving]
  - Chronic obstructive pulmonary disease [Recovered/Resolved]

NARRATIVE: CASE EVENT DATE: 20130816
